FAERS Safety Report 9585486 (Version 3)
Quarter: 2013Q4

REPORT INFORMATION
  Report Type: Report from Study
  Country: DK (occurrence: DK)
  Receive Date: 20131003
  Receipt Date: 20131224
  Transmission Date: 20140711
  Serious: Yes (Hospitalization)
  Sender: FDA-Public Use
  Company Number: DK-AMGEN-DNKCT2013069266

PATIENT
  Age: 54 Year
  Sex: Female

DRUGS (4)
  1. ETANERCEPT [Suspect]
     Indication: RHEUMATOID ARTHRITIS
     Dosage: 50 MG, QWK
     Route: 058
     Dates: start: 20130404, end: 20130726
  2. ARAVA [Concomitant]
     Indication: RHEUMATOID ARTHRITIS
     Dosage: UNK
     Dates: start: 20100928
  3. LEFLUNOMIDE [Concomitant]
     Indication: RHEUMATOID ARTHRITIS
     Dosage: UNK
  4. PREDNISOLON                        /00016201/ [Concomitant]
     Dosage: UNK

REACTIONS (5)
  - Parotitis [Recovering/Resolving]
  - Salivary gland enlargement [Recovering/Resolving]
  - Salivary gland pain [Recovering/Resolving]
  - Salivary gland disorder [Recovering/Resolving]
  - Parotid gland inflammation [Recovering/Resolving]
